FAERS Safety Report 9562028 (Version 1)
Quarter: 2013Q3

REPORT INFORMATION
  Report Type: Spontaneous
  Country: IE (occurrence: IE)
  Receive Date: 20130927
  Receipt Date: 20130927
  Transmission Date: 20140515
  Serious: Yes (Death)
  Sender: FDA-Public Use
  Company Number: IE-PFIZER INC-2013276197

PATIENT
  Age: 32 Year
  Sex: Female

DRUGS (1)
  1. CYTOTEC [Suspect]
     Indication: INDUCED LABOUR
     Dosage: UNK
     Route: 067
     Dates: start: 20100304

REACTIONS (4)
  - Off label use [Fatal]
  - Uterine rupture [Fatal]
  - Uterine haemorrhage [Fatal]
  - Cardiac arrest [Fatal]
